FAERS Safety Report 16687153 (Version 1)
Quarter: 2019Q3

REPORT INFORMATION
  Report Type: Report from Study
  Country: US (occurrence: US)
  Receive Date: 20190809
  Receipt Date: 20190809
  Transmission Date: 20191004
  Serious: Yes (Hospitalization)
  Sender: FDA-Public Use
  Company Number: US-EISAI MEDICAL RESEARCH-EC-2019-055414

PATIENT
  Age: 65 Year
  Sex: Male
  Weight: 100 kg

DRUGS (25)
  1. RANITIDINE HCL [Concomitant]
     Active Substance: RANITIDINE HYDROCHLORIDE
  2. SENNA-EXTRA [Concomitant]
  3. POTASSIUM [Concomitant]
     Active Substance: POTASSIUM
  4. LEVOTHYROXINE. [Concomitant]
     Active Substance: LEVOTHYROXINE
  5. LENVIMA [Suspect]
     Active Substance: LENVATINIB
     Indication: HEPATOCELLULAR CARCINOMA
     Route: 048
     Dates: start: 20190418, end: 2019
  6. REGLAN [Concomitant]
     Active Substance: METOCLOPRAMIDE HYDROCHLORIDE
  7. MULTIVITAMIN [Concomitant]
     Active Substance: VITAMINS
  8. LISINOPRIL. [Concomitant]
     Active Substance: LISINOPRIL
  9. LASIX [Concomitant]
     Active Substance: FUROSEMIDE
  10. NORVASC [Concomitant]
     Active Substance: AMLODIPINE BESYLATE
  11. DULOXETINE HCL [Concomitant]
     Active Substance: DULOXETINE HYDROCHLORIDE
  12. VITAMIN C [Concomitant]
     Active Substance: ASCORBIC ACID
  13. FISH OIL [Concomitant]
     Active Substance: FISH OIL
  14. CANNABIS INDICA SMOKE [Concomitant]
  15. CLONIDINE HCL [Concomitant]
     Active Substance: CLONIDINE HYDROCHLORIDE
  16. LENVIMA [Suspect]
     Active Substance: LENVATINIB
     Route: 048
     Dates: start: 2019
  17. VITAMIN B-6 [Concomitant]
     Active Substance: PYRIDOXINE
  18. METOPROLOL. [Concomitant]
     Active Substance: METOPROLOL
  19. THC/CBD [Concomitant]
  20. VITAMIN D3 [Concomitant]
     Active Substance: CHOLECALCIFEROL
  21. NORCO [Concomitant]
     Active Substance: ACETAMINOPHEN\HYDROCODONE BITARTRATE
  22. DURAGESIC [Concomitant]
     Active Substance: FENTANYL
  23. ZOFRAN [Concomitant]
     Active Substance: ONDANSETRON HYDROCHLORIDE
  24. PROBIOTIC 100B CELL [Concomitant]
  25. NEURONTIN [Concomitant]
     Active Substance: GABAPENTIN

REACTIONS (25)
  - Headache [Not Recovered/Not Resolved]
  - Vomiting [Unknown]
  - Skin exfoliation [Unknown]
  - Malignant neoplasm progression [Unknown]
  - Arthralgia [Unknown]
  - Swollen tongue [Unknown]
  - Productive cough [Unknown]
  - Fatigue [Not Recovered/Not Resolved]
  - Stomatitis [Unknown]
  - Blood pressure increased [Unknown]
  - Myalgia [Recovering/Resolving]
  - Frequent bowel movements [Unknown]
  - Pollakiuria [Unknown]
  - Acrochordon [Unknown]
  - Sleep disorder [Unknown]
  - Dysphonia [Unknown]
  - Nausea [Unknown]
  - Hyperkeratosis [Unknown]
  - Hypoacusis [Unknown]
  - Decreased appetite [Unknown]
  - Hypothyroidism [Unknown]
  - Abdominal pain upper [Unknown]
  - Blood potassium decreased [Unknown]
  - Rash [Recovered/Resolved]
  - Hepatic pain [Unknown]

NARRATIVE: CASE EVENT DATE: 2019
